FAERS Safety Report 8167328-3 (Version None)
Quarter: 2012Q1

REPORT INFORMATION
  Report Type: 
  Country: None (occurrence: None)
  Receive Date: 20120221
  Receipt Date: 20120213
  Transmission Date: 20120608
  Serious: Yes (Other)
  Sender: FDA-Public Use
  Company Number: 2012MA002140

PATIENT
  Age: 57 Year
  Sex: Male

DRUGS (3)
  1. GEMCITABINE HYDROCHLORIDE [Suspect]
     Indication: NON-SMALL CELL LUNG CANCER
     Dosage: 1100 MG/M2
  2. INSULIN [Concomitant]
  3. FELODIPINE [Concomitant]

REACTIONS (9)
  - OEDEMA PERIPHERAL [None]
  - BLOOD CREATINE PHOSPHOKINASE INCREASED [None]
  - MYALGIA [None]
  - MUSCULAR WEAKNESS [None]
  - ALDOLASE INCREASED [None]
  - MYOPATHY [None]
  - MYOSITIS [None]
  - BLOOD LACTATE DEHYDROGENASE INCREASED [None]
  - NORMOCHROMIC NORMOCYTIC ANAEMIA [None]
